FAERS Safety Report 4720828-8 (Version None)
Quarter: 2005Q3

REPORT INFORMATION
  Report Type: 
  Country: None (occurrence: None)
  Receive Date: 20050720
  Receipt Date: 20050715
  Transmission Date: 20060218
  Serious: Yes (Other)
  Sender: FDA-Public Use
  Company Number: 005226

PATIENT
  Sex: Female

DRUGS (4)
  1. MEDROXYPROGESTERONE ACETATE [Suspect]
     Dosage: ORAL
     Route: 048
     Dates: start: 19880901, end: 19960901
  2. PROVERA [Suspect]
     Dosage: ORAL
     Route: 048
     Dates: start: 19880901, end: 19960901
  3. PREMARIN [Suspect]
     Dosage: ORAL
     Route: 048
     Dates: start: 19880901, end: 19960901
  4. PREMPRO [Suspect]
     Dosage: ORAL
     Route: 048
     Dates: start: 19880901, end: 19960901

REACTIONS (1)
  - BREAST CANCER FEMALE [None]
